FAERS Safety Report 11607519 (Version 2)
Quarter: 2016Q1

REPORT INFORMATION
  Report Type: Spontaneous
  Country: IT (occurrence: IT)
  Receive Date: 20151007
  Receipt Date: 20160125
  Transmission Date: 20160525
  Serious: Yes (Other)
  Sender: FDA-Public Use
  Company Number: IT-PFIZER INC-2015333605

PATIENT
  Age: 63 Year
  Sex: Female

DRUGS (4)
  1. HEPARIN SODIUM. [Suspect]
     Active Substance: HEPARIN SODIUM
     Dosage: 500 IU/ HOUR
     Route: 040
  2. HEPARIN SODIUM. [Suspect]
     Active Substance: HEPARIN SODIUM
     Dosage: 3000- 4000 UI, UNK
     Route: 040
  3. ROSUVASTATIN [Concomitant]
     Active Substance: ROSUVASTATIN
     Indication: LIPIDS INCREASED
     Dosage: 10 MG, UNK
  4. EZETIMIBE. [Concomitant]
     Active Substance: EZETIMIBE
     Indication: LIPIDS INCREASED
     Dosage: 10 MG, UNK

REACTIONS (2)
  - Cardiac arrest [Recovering/Resolving]
  - Pulmonary embolism [Recovering/Resolving]
